FAERS Safety Report 8666715 (Version 2)
Quarter: 2012Q4

REPORT INFORMATION
  Report Type: 
  Country: SE (occurrence: SE)
  Receive Date: 20120716
  Receipt Date: 20120926
  Transmission Date: 20130627
  Serious: Yes (Death, Hospitalization)
  Sender: FDA-Public Use
  Company Number: PHHO2012SE009233

PATIENT
  Age: 68 Year
  Sex: Male
  Weight: 88 kg

DRUGS (2)
  1. SORAFENIB [Suspect]
     Indication: METASTATIC RENAL CELL CARCINOMA
     Dosage: 400 mg, UNK
     Route: 048
     Dates: start: 20120102, end: 20120619
  2. PREDNISOLONE [Suspect]
     Indication: MOOD ALTERED
     Dosage: 20 mg, UNK
     Dates: start: 20110712

REACTIONS (3)
  - Pneumoperitoneum [Recovering/Resolving]
  - General physical health deterioration [Fatal]
  - Large intestine perforation [None]
